FAERS Safety Report 10269910 (Version 1)
Quarter: 2014Q2

REPORT INFORMATION
  Report Type: Spontaneous
  Country: US (occurrence: None)
  Receive Date: 20140626
  Receipt Date: 20140626
  Transmission Date: 20141212
  Serious: Yes (Disabling)
  Sender: FDA-Public Use
  Company Number: None

PATIENT
  Age: 45 Year
  Sex: Female
  Weight: 170 kg

DRUGS (9)
  1. BENICAR [Suspect]
     Indication: HYPERTENSION
     Dosage: 20 MG, 1 TAB EVERY DAY, 1 DAILY, BY MOUTH
     Route: 048
     Dates: start: 2002
  2. BENICAR [Concomitant]
  3. ZOLPIDEM TARTRATE [Concomitant]
  4. LORATADINE [Concomitant]
  5. TOPIRAMATE [Concomitant]
  6. HYDROCODONE [Concomitant]
  7. ADDERALL [Concomitant]
  8. NEXIUM [Concomitant]
  9. VITAMIN 5000 CAPS [Concomitant]

REACTIONS (3)
  - Dizziness [None]
  - Dizziness [None]
  - Hypertension [None]
